FAERS Safety Report 6916440-2 (Version None)
Quarter: 2010Q3

REPORT INFORMATION
  Report Type: 
  Country: None (occurrence: None)
  Receive Date: 20100804
  Receipt Date: 20100722
  Transmission Date: 20110219
  Serious: Yes (Hospitalization)
  Sender: FDA-Public Use
  Company Number: 1000015382

PATIENT
  Age: 47 Year
  Sex: Male

DRUGS (7)
  1. ESCITALOPRAM (ESCITALOPRAM OXALATE) (20 MILLIGRAM, TALBETS) [Suspect]
     Dosage: (440MG, ONCE), ORAL
     Route: 048
     Dates: start: 20100531, end: 20100531
  2. EFFEXOR [Suspect]
     Indication: DEPRESSION
     Dosage: (3375 MG, ONCE) ORAL
     Route: 048
     Dates: start: 20100531, end: 20100531
  3. BACLOFEN [Suspect]
     Indication: DEPRESSION
     Dosage: 220 MG, ONCE), ORAL
     Route: 048
     Dates: start: 20100531, end: 20100531
  4. ZOLPIDEM [Suspect]
     Indication: DEPRESSION
     Dosage: 50 MG ONCE, ORAL
     Route: 048
     Dates: start: 20100531, end: 20100531
  5. NOCTAMIDE (2 MICROMOL, TABLETS) [Suspect]
     Dosage: 18 MG, ONCE, ORAL
     Route: 048
     Dates: start: 20100531, end: 20100531
  6. NEULEPTIL (CAPSULES) [Suspect]
     Dosage: 30 MG, ONCE, ORAL
     Route: 048
     Dates: start: 20100531, end: 20100531
  7. ALCOHOL [Suspect]
     Dosage: SEVERAL GLASSES OF WISKEY AND 3 BOTTLES OF WINE ONCE ORAL
     Route: 048
     Dates: start: 20100531, end: 20100531

REACTIONS (9)
  - COMA [None]
  - CONFUSIONAL STATE [None]
  - HALLUCINATION, VISUAL [None]
  - HEART RATE INCREASED [None]
  - MULTIPLE DRUG OVERDOSE INTENTIONAL [None]
  - NERVOUS SYSTEM DISORDER [None]
  - RENAL FAILURE ACUTE [None]
  - RHABDOMYOLYSIS [None]
  - SUICIDE ATTEMPT [None]
